FAERS Safety Report 6823434-4 (Version None)
Quarter: 2010Q3

REPORT INFORMATION
  Report Type: 
  Country: None (occurrence: None)
  Receive Date: 20100708
  Receipt Date: 20100623
  Transmission Date: 20110219
  Serious: Yes (Other)
  Sender: FDA-Public Use
  Company Number: PHEH2007US10342

PATIENT
  Sex: Male

DRUGS (6)
  1. ZOMETA [Suspect]
     Indication: MULTIPLE MYELOMA
     Dosage: UNK
     Dates: start: 20030101, end: 20050801
  2. AUGMENTIN '125' [Concomitant]
     Dosage: 875MG PO BID X3WEEKS
     Route: 048
     Dates: start: 20060927
  3. CHLORHEXIDINE DENTAL ^ACO^ [Concomitant]
     Dosage: MOUTHRINSES
     Route: 049
  4. THALIDOMIDE [Concomitant]
     Dosage: UNK
  5. MORPHINE [Concomitant]
  6. VELCADE [Concomitant]

REACTIONS (22)
  - ANHEDONIA [None]
  - ANXIETY [None]
  - BONE DISORDER [None]
  - DEFORMITY [None]
  - DISCOMFORT [None]
  - EMOTIONAL DISTRESS [None]
  - HYPOPHAGIA [None]
  - INFECTION [None]
  - JAW FRACTURE [None]
  - LIFE EXPECTANCY SHORTENED [None]
  - LOOSE TOOTH [None]
  - MASTICATION DISORDER [None]
  - MOBILITY DECREASED [None]
  - ORAL DISORDER [None]
  - OROANTRAL FISTULA [None]
  - OSTEONECROSIS OF JAW [None]
  - PAIN [None]
  - PAIN IN JAW [None]
  - PRIMARY SEQUESTRUM [None]
  - RHINORRHOEA [None]
  - TOOTH EXTRACTION [None]
  - WOUND DEHISCENCE [None]
